FAERS Safety Report 5232087-0 (Version None)
Quarter: 2007Q1

REPORT INFORMATION
  Report Type: 
  Country: None (occurrence: None)
  Receive Date: 20061201
  Receipt Date: 20060831
  Transmission Date: 20070707
  Serious: No
  Sender: FDA-Public Use
  Company Number: US200609000610

PATIENT
  Age: 48 Year
  Sex: Male

DRUGS (12)
  1. CYMBALTA [Suspect]
     Indication: DEPRESSION
     Dosage: 60 MG
     Dates: start: 20060712
  2. METFORMIN HCL [Concomitant]
  3. AVANDIA [Concomitant]
  4. ASPIRIN [Concomitant]
  5. MOTRIN [Concomitant]
  6. ALLEGRA [Concomitant]
  7. LISINOPRIL [Concomitant]
  8. VITAMIN B-COMPLEX WITH VITAMIN C [Concomitant]
  9. CALCIUM MAGNESIUM ZINC (CALCIUM, MAGNESIUM, ZINC) [Concomitant]
  10. ANTIBIOTICS [Concomitant]
  11. OTHER EMOLLIENTS AND PROTECTIVES [Concomitant]
  12. NORTRIPTYLINE HCL [Concomitant]

REACTIONS (8)
  - AGITATION [None]
  - DIZZINESS [None]
  - HEAD INJURY [None]
  - INSOMNIA [None]
  - MEMORY IMPAIRMENT [None]
  - PAIN [None]
  - RASH [None]
  - TINNITUS [None]
